FAERS Safety Report 5431935-9 (Version None)
Quarter: 2007Q3

REPORT INFORMATION
  Report Type: 
  Country: None (occurrence: None)
  Receive Date: 20070731
  Receipt Date: 20070510
  Transmission Date: 20080115
  Serious: No
  Sender: FDA-Public Use
  Company Number: US200705003096

PATIENT
  Age: 63 Year
  Sex: Female

DRUGS (13)
  1. BYETTA [Suspect]
     Indication: TYPE 2 DIABETES MELLITUS
     Dosage: 5 UG, 2/D, SUBCUTANEOUS, 10 UG, 2/D SUBCUTANEOUS
     Route: 058
  2. EXENATIDE 5MCG PEN, DISPOSABLE DEVICE (EXENATIDE PEN (5MCG)) PEN,DISPO [Concomitant]
  3. EXENATIDE 10MCG PEN,DISPOSABLE DEVICE (EXENATIDE PEN (10MCG)) PEN,DISP [Concomitant]
  4. LEVOXYL [Concomitant]
  5. GLYBURIDE [Concomitant]
  6. METFORMIN HCL [Concomitant]
  7. ZETIA [Concomitant]
  8. LANTUS [Concomitant]
  9. CALTRATE (CALCIUM, VITAMIN D NOS) [Concomitant]
  10. ALTACE [Concomitant]
  11. MOBIC [Concomitant]
  12. ACTONEL [Concomitant]
  13. LIPITOR [Concomitant]

REACTIONS (5)
  - FOOD CRAVING [None]
  - GASTROOESOPHAGEAL REFLUX DISEASE [None]
  - MEMORY IMPAIRMENT [None]
  - VISION BLURRED [None]
  - WEIGHT DECREASED [None]
